FAERS Safety Report 6061379-0 (Version None)
Quarter: 2009Q1

REPORT INFORMATION
  Report Type: 
  Country: None (occurrence: None)
  Receive Date: 20090129
  Receipt Date: 20090129
  Transmission Date: 20090719
  Serious: No
  Sender: FDA-Public Use
  Company Number: None

PATIENT
  Sex: Male
  Weight: 86.1834 kg

DRUGS (2)
  1. CUBICIN [Suspect]
     Indication: OSTEOMYELITIS
     Dosage: 518MG  Q24 HOURS- IV DRIP
     Route: 041
     Dates: start: 20090114, end: 20090126
  2. CUBICIN [Suspect]
     Indication: STAPHYLOCOCCAL INFECTION
     Dosage: 518MG  Q24 HOURS- IV DRIP
     Route: 041
     Dates: start: 20090114, end: 20090126

REACTIONS (1)
  - BLOOD CREATINE PHOSPHOKINASE INCREASED [None]
